FAERS Safety Report 21043128 (Version 1)
Quarter: 2022Q3

REPORT INFORMATION
  Report Type: Spontaneous
  Country: US (occurrence: None)
  Receive Date: 20220702
  Receipt Date: 20220702
  Transmission Date: 20221026
  Serious: Yes (Hospitalization)
  Sender: FDA-Public Use
  Company Number: None

PATIENT
  Age: 73 Year
  Sex: Male
  Weight: 73.6 kg

DRUGS (1)
  1. GEMCITABINE HYDROCHLORIDE [Suspect]
     Active Substance: GEMCITABINE HYDROCHLORIDE
     Dates: end: 20220606

REACTIONS (9)
  - Pyrexia [None]
  - Chills [None]
  - Asthenia [None]
  - Fatigue [None]
  - Clostridium difficile infection [None]
  - Liver abscess [None]
  - Dyspnoea exertional [None]
  - Decubitus ulcer [None]
  - Pneumobilia [None]

NARRATIVE: CASE EVENT DATE: 20220623
